FAERS Safety Report 24840070 (Version 2)
Quarter: 2025Q2

REPORT INFORMATION
  Report Type: Spontaneous
  Country: US (occurrence: US)
  Receive Date: 20250114
  Receipt Date: 20250410
  Transmission Date: 20250717
  Serious: Yes (Hospitalization, Other)
  Sender: JOHNSON AND JOHNSON
  Company Number: US-ViiV Healthcare-US2025GSK001359

PATIENT
  Age: 30 Year
  Sex: Male

DRUGS (10)
  1. RILPIVIRINE [Suspect]
     Active Substance: RILPIVIRINE
     Indication: HIV infection
     Route: 048
     Dates: start: 202310
  2. RILPIVIRINE [Suspect]
     Active Substance: RILPIVIRINE
     Indication: HIV infection
     Route: 030
  3. HEPATITIS B VIRUS VACCINE [Suspect]
     Active Substance: HEPATITIS B VIRUS VACCINE
     Indication: Prophylaxis
     Route: 065
  4. CABOTEGRAVIR [Suspect]
     Active Substance: CABOTEGRAVIR
     Indication: HIV infection
     Dosage: UNK
     Route: 048
     Dates: start: 202310
  5. CABOTEGRAVIR [Suspect]
     Active Substance: CABOTEGRAVIR
     Indication: HIV infection
     Dosage: UNK
     Route: 065
     Dates: start: 202311
  6. ATORVASTATIN [Concomitant]
     Active Substance: ATORVASTATIN
     Indication: Product used for unknown indication
     Dosage: 10 MG, QD
     Route: 065
  7. FENOFIBRATE [Concomitant]
     Active Substance: FENOFIBRATE
     Indication: Product used for unknown indication
     Dosage: 48 MG, QD
     Route: 065
  8. BICTEGRAVIR [Concomitant]
     Active Substance: BICTEGRAVIR
     Indication: Antiretroviral therapy
     Route: 065
  9. EMTRICITABINE [Concomitant]
     Active Substance: EMTRICITABINE
     Indication: Antiretroviral therapy
     Route: 065
  10. TENOFOVIR ALAFENAMIDE [Concomitant]
     Active Substance: TENOFOVIR ALAFENAMIDE
     Indication: Antiretroviral therapy
     Route: 065

REACTIONS (1)
  - Acute hepatitis B [Recovering/Resolving]
